FAERS Safety Report 4983362-6 (Version None)
Quarter: 2006Q2

REPORT INFORMATION
  Report Type: 
  Country: None (occurrence: None)
  Receive Date: 20060426
  Receipt Date: 20050829
  Transmission Date: 20061013
  Serious: Yes (Hospitalization, Other)
  Sender: FDA-Public Use
  Company Number: US-MERCK-0508USA04727

PATIENT
  Age: 83 Year
  Sex: Male
  Weight: 107 kg

DRUGS (8)
  1. VIOXX [Suspect]
     Indication: ARTHRITIS
     Route: 048
     Dates: start: 20030821, end: 20040422
  2. TOPROL-XL [Concomitant]
     Route: 048
  3. POTASSIUM CHLORIDE [Concomitant]
     Route: 048
  4. ACCUPRIL [Concomitant]
     Route: 048
  5. PREVACID [Concomitant]
     Route: 048
  6. CYANOCOBALAMIN [Concomitant]
     Route: 065
  7. LASIX [Concomitant]
     Route: 048
  8. COUMADIN [Concomitant]
     Route: 065

REACTIONS (10)
  - ANXIETY [None]
  - ASTHENIA [None]
  - ATRIAL FIBRILLATION [None]
  - CARDIAC FAILURE CONGESTIVE [None]
  - DEPRESSION [None]
  - DYSPHAGIA [None]
  - DYSPNOEA [None]
  - HYPOAESTHESIA [None]
  - ISCHAEMIC STROKE [None]
  - POLYTRAUMATISM [None]
